FAERS Safety Report 18014791 (Version 2)
Quarter: 2020Q3

REPORT INFORMATION
  Report Type: Spontaneous
  Country: AU (occurrence: AU)
  Receive Date: 20200713
  Receipt Date: 20200817
  Transmission Date: 20201103
  Serious: No
  Sender: FDA-Public Use
  Company Number: AU-JNJFOC-20200700320

PATIENT
  Age: 72 Year
  Sex: Female

DRUGS (17)
  1. DUROGESIC [Suspect]
     Active Substance: FENTANYL
  2. DURAGESIC [Suspect]
     Active Substance: FENTANYL
  3. DURAGESIC [Suspect]
     Active Substance: FENTANYL
  4. DUROGESIC [Suspect]
     Active Substance: FENTANYL
     Indication: PAIN
     Route: 062
  5. DUROGESIC [Suspect]
     Active Substance: FENTANYL
  6. DUROGESIC [Suspect]
     Active Substance: FENTANYL
  7. DURAGESIC [Suspect]
     Active Substance: FENTANYL
  8. DURAGESIC [Suspect]
     Active Substance: FENTANYL
  9. DUROGESIC [Suspect]
     Active Substance: FENTANYL
     Indication: PAIN
     Dosage: STRENGTH: DUROGESIC PATCH MATRIX 12.00 MCG/HR
     Route: 062
  10. DUROGESIC [Suspect]
     Active Substance: FENTANYL
  11. DUROGESIC [Suspect]
     Active Substance: FENTANYL
  12. DURAGESIC [Suspect]
     Active Substance: FENTANYL
     Indication: PRODUCT USED FOR UNKNOWN INDICATION
     Route: 062
  13. DURAGESIC [Suspect]
     Active Substance: FENTANYL
  14. DURAGESIC [Suspect]
     Active Substance: FENTANYL
     Indication: PRODUCT USED FOR UNKNOWN INDICATION
     Route: 062
  15. DURAGESIC [Suspect]
     Active Substance: FENTANYL
     Indication: PRODUCT USED FOR UNKNOWN INDICATION
     Route: 062
  16. DUROGESIC [Suspect]
     Active Substance: FENTANYL
  17. DURAGESIC [Suspect]
     Active Substance: FENTANYL

REACTIONS (2)
  - Product adhesion issue [Unknown]
  - Pain [Unknown]
